FAERS Safety Report 4369022-3 (Version None)
Quarter: 2004Q2

REPORT INFORMATION
  Report Type: 
  Country: None (occurrence: None)
  Receive Date: 20040527
  Receipt Date: 20040517
  Transmission Date: 20050107
  Serious: Yes (Death)
  Sender: FDA-Public Use
  Company Number: US-SHR-04-024911

PATIENT
  Age: 34 Year
  Sex: Female
  Weight: 43.1 kg

DRUGS (2)
  1. YASMIN (ETHINYLESTRADIOL, DROSPIRENONE) FILM TABLET [Suspect]
     Indication: ACNE
     Dosage: 1 TAB(S), 1 X/DAY, ORAL
     Route: 048
     Dates: start: 20031113, end: 20040305
  2. DOXYCYCLINE [Concomitant]

REACTIONS (6)
  - CIRCULATORY COLLAPSE [None]
  - FACE INJURY [None]
  - JOINT INJURY [None]
  - PULMONARY EMBOLISM [None]
  - PULMONARY INFARCTION [None]
  - SUDDEN DEATH [None]
